FAERS Safety Report 8042392-0 (Version None)
Quarter: 2012Q1

REPORT INFORMATION
  Report Type: 
  Country: None (occurrence: None)
  Receive Date: 20120112
  Receipt Date: 20120104
  Transmission Date: 20120608
  Serious: Yes (Hospitalization)
  Sender: FDA-Public Use
  Company Number: US-BAYER-2011-033122

PATIENT
  Age: 22 Year
  Sex: Female
  Weight: 78 kg

DRUGS (13)
  1. WELLBUTRIN [Concomitant]
     Indication: ANXIETY
     Dosage: UNK
     Dates: start: 20020101, end: 20060101
  2. FISH OIL [Concomitant]
     Indication: MEDICAL DIET
  3. EMERGEN-C [Concomitant]
     Indication: MEDICAL DIET
  4. CLORAZEPATE DIPOTASSIUM [Concomitant]
     Dosage: 7.5 MG, HS
     Dates: start: 20060616
  5. ZYBAN [Concomitant]
     Dosage: 150 MG, DAILY
     Dates: start: 20060825
  6. BENADRYL [Concomitant]
     Indication: MULTIPLE ALLERGIES
  7. DROSPIRENONE AND ETHINYL ESTRADIOL [Suspect]
     Indication: POLYCYSTIC OVARIES
     Dosage: UNK
     Dates: start: 20050101, end: 20080101
  8. MULTI-VITAMIN [Concomitant]
     Indication: MEDICAL DIET
  9. IBUPROFEN [Concomitant]
     Indication: PAIN
  10. NAPROXEN (ALEVE) [Concomitant]
     Indication: PAIN
  11. PRILOSEC [Concomitant]
     Dosage: 20 MG, QD
     Dates: start: 20060616
  12. YASMIN [Suspect]
     Indication: POLYCYSTIC OVARIES
     Dosage: UNK
     Dates: start: 20050101, end: 20080101
  13. WELLBUTRIN [Concomitant]
     Dosage: 150 MG, DAILY

REACTIONS (4)
  - GALLBLADDER NON-FUNCTIONING [None]
  - GALLBLADDER DISORDER [None]
  - CHOLECYSTITIS ACUTE [None]
  - PAIN [None]
